FAERS Safety Report 10096098 (Version 1)
Quarter: 2014Q2

REPORT INFORMATION
  Report Type: Spontaneous
  Country: DK (occurrence: GB)
  Receive Date: 20140422
  Receipt Date: 20140422
  Transmission Date: 20141212
  Serious: Yes (Other)
  Sender: FDA-Public Use
  Company Number: GB-FRI-1000066568

PATIENT
  Age: 28 Year
  Sex: Female
  Weight: 60 kg

DRUGS (4)
  1. CITALOPRAM [Suspect]
     Indication: DEPRESSION
     Dosage: 20 MG
     Route: 048
     Dates: start: 20131128, end: 20140311
  2. DIAZEPAM [Concomitant]
     Indication: ANXIETY
     Dosage: 2 MG AS NECESSARY
     Route: 048
     Dates: start: 20140110
  3. FLUCLOXACILLIN [Concomitant]
     Indication: ANIMAL BITE
     Dosage: 500 MG
     Route: 048
     Dates: start: 20131230
  4. CILEST [Concomitant]
     Indication: CONTRACEPTION
     Dosage: 1 DF
     Route: 048
     Dates: start: 2004

REACTIONS (1)
  - Increased tendency to bruise [Recovering/Resolving]
